FAERS Safety Report 7761768-X (Version None)
Quarter: 2011Q3

REPORT INFORMATION
  Report Type: 
  Country: None (occurrence: None)
  Receive Date: 20110920
  Receipt Date: 20110909
  Transmission Date: 20111222
  Serious: Yes (Hospitalization)
  Sender: FDA-Public Use
  Company Number: PHHY2011IT80631

PATIENT
  Sex: Female

DRUGS (4)
  1. IRBESARTAN AND HYDROCHLOROTHIAZIDE [Concomitant]
     Dosage: 300 MG/25 MG
  2. LERCADIP [Concomitant]
     Dosage: UNK UKN, UNK
  3. ATENOLOL [Concomitant]
     Dosage: UNK UKN, UNK
  4. DICLOFENAC SODIUM [Suspect]
     Indication: NECK PAIN
     Dosage: 1 POSOLOGIC UNIT, UPON NEED
     Route: 048
     Dates: start: 20110812, end: 20110816

REACTIONS (6)
  - DIVERTICULITIS [None]
  - ANAEMIA [None]
  - HAEMOGLOBIN DECREASED [None]
  - HYPERPLASIA [None]
  - GASTRIC ULCER [None]
  - GASTROINTESTINAL NECROSIS [None]
